FAERS Safety Report 7132849-9 (Version None)
Quarter: 2010Q4

REPORT INFORMATION
  Report Type: 
  Country: None (occurrence: None)
  Receive Date: 20101202
  Receipt Date: 20101119
  Transmission Date: 20110411
  Serious: Yes (Hospitalization, Other)
  Sender: FDA-Public Use
  Company Number: US-PFIZER INC-HQWYE011319MAY04

PATIENT
  Sex: Female
  Weight: 73 kg

DRUGS (5)
  1. PROVERA [Suspect]
     Indication: HORMONE REPLACEMENT THERAPY
     Dosage: 10 MG
     Route: 065
     Dates: start: 19861202
  2. PROVERA [Suspect]
     Dosage: 5 MG,
     Dates: start: 19910122, end: 19970327
  3. PREMARIN [Suspect]
     Indication: HORMONE REPLACEMENT THERAPY
     Dosage: 0.625 MG, UNK
     Route: 048
     Dates: start: 19871124, end: 19970327
  4. TRIAVIL [Concomitant]
     Indication: ANXIETY
     Dosage: 2-25 UNK
     Dates: start: 19860527
  5. TRIAVIL [Concomitant]
     Indication: MENOPAUSAL SYMPTOMS

REACTIONS (1)
  - BREAST CANCER METASTATIC [None]
